FAERS Safety Report 9714726 (Version 3)
Quarter: 2014Q1

REPORT INFORMATION
  Report Type: Report from Study
  Country: NL (occurrence: NL)
  Receive Date: 20131126
  Receipt Date: 20140224
  Transmission Date: 20141002
  Serious: Yes (Hospitalization)
  Sender: FDA-Public Use
  Company Number: NL-VERTEX PHARMACEUTICALS INC-2013-011383

PATIENT
  Age: 52 Year
  Sex: Female
  Weight: 44 kg

DRUGS (9)
  1. VX-950 (TELAPREVIR) [Suspect]
     Indication: HEPATITIS C
     Dosage: 1125 MG, BID
     Route: 048
  2. RIBAVIRIN [Suspect]
     Indication: HEPATITIS C
     Dosage: DOSAGE FORM: UNKNOWN, DAY 1
     Route: 065
     Dates: start: 20131112
  3. RIBAVIRIN [Suspect]
     Dosage: DOSAGE FORM: UNKNOWN, DAY 1
     Route: 065
  4. PEGYLATED INTERFERON [Suspect]
     Indication: HEPATITIS C
     Dosage: DOSAGE FORM: UNSPECIFIED
     Route: 058
     Dates: start: 20131112
  5. NIFEDIPINE [Concomitant]
     Dosage: DOSAGE FORM: UNSPECIFIED
     Route: 065
  6. METOPROLOL [Concomitant]
     Dosage: DOSAGE FORM: UNSPECIFIED
     Route: 065
  7. NEXIUM [Concomitant]
     Dosage: DOSAGE FORM: UNSPECIFIED
     Route: 065
  8. LISINOPRIL [Concomitant]
     Dosage: DOSAGE FORM: UNSPECIFIED
     Route: 065
  9. PAROXETINE [Concomitant]
     Dosage: DOSAGE FORM: UNSPECIFIED
     Route: 065

REACTIONS (2)
  - Pancreatitis acute [Unknown]
  - Gastroenteritis [Unknown]
